FAERS Safety Report 9491827 (Version 2)
Quarter: 2013Q3

REPORT INFORMATION
  Report Type: Not Available
  Country: US (occurrence: US)
  Receive Date: 20130919
  Receipt Date: 20130919
  Transmission Date: 20140515
  Serious: No
  Sender: FDA-Public Use
  Company Number: US-LUNDBECK-DKLU1083462

PATIENT
  Sex: Female

DRUGS (7)
  1. SABRIL (TABLET) [Suspect]
     Indication: GRAND MAL CONVULSION
     Route: 048
     Dates: start: 20110808
  2. TRILEPTAL [Concomitant]
     Indication: EPILEPSY
  3. DEPAKOTE [Concomitant]
     Indication: EPILEPSY
  4. DILANTIN [Concomitant]
     Indication: EPILEPSY
  5. POTIGA [Concomitant]
     Indication: EPILEPSY
  6. ENABLEX [Concomitant]
     Indication: URINARY INCONTINENCE
  7. DEPOPROVERA [Concomitant]
     Indication: PRODUCT USED FOR UNKNOWN INDICATION

REACTIONS (1)
  - Cataract [Not Recovered/Not Resolved]
